FAERS Safety Report 9300858 (Version 1)
Quarter: 2013Q2

REPORT INFORMATION
  Report Type: Spontaneous
  Country: US (occurrence: None)
  Receive Date: 20130520
  Receipt Date: 20130520
  Transmission Date: 20140414
  Serious: No
  Sender: FDA-Public Use
  Company Number: None

PATIENT
  Age: 66 Year
  Sex: 0
  Weight: 70.31 kg

DRUGS (1)
  1. AVELOX [Suspect]
     Indication: PNEUMONIA BACTERIAL
     Dosage: 6, PO
     Route: 048
     Dates: start: 20130204, end: 20130210

REACTIONS (5)
  - Inflammation [None]
  - Pain in extremity [None]
  - Arthralgia [None]
  - Arthralgia [None]
  - Paraesthesia [None]
